FAERS Safety Report 12557441 (Version 3)
Quarter: 2016Q3

REPORT INFORMATION
  Report Type: Report from Study
  Country: CO (occurrence: CO)
  Receive Date: 20160714
  Receipt Date: 20160815
  Transmission Date: 20161109
  Serious: No
  Sender: FDA-Public Use
  Company Number: PHHY2016CO013865

PATIENT
  Sex: Female
  Weight: 81 kg

DRUGS (3)
  1. TASIGNA [Suspect]
     Active Substance: NILOTINIB
     Indication: CHRONIC MYELOID LEUKAEMIA
     Dosage: 2 DF, BID (2 IN THE MORNING AND 2 AT NIGHT)
     Route: 048
     Dates: start: 20151010
  2. LEVOTHYROXINE. [Concomitant]
     Active Substance: LEVOTHYROXINE
     Indication: THYROID DISORDER
     Dosage: 75 MG, QD (FASTING)
     Route: 065
  3. INTERFERON ALFA-2B [Concomitant]
     Active Substance: INTERFERON ALFA-2B
     Indication: PRODUCT USED FOR UNKNOWN INDICATION
     Dosage: 2.5 IU, QW3 (MONDAY, WEDNESDAY, FRIDAY)
     Route: 065
     Dates: start: 201506, end: 201510

REACTIONS (8)
  - Arthralgia [Unknown]
  - Headache [Not Recovered/Not Resolved]
  - Gastritis [Unknown]
  - Hypersensitivity [Unknown]
  - Pruritus [Unknown]
  - Suppressed lactation [Unknown]
  - Rash generalised [Unknown]
  - Temperature intolerance [Unknown]
